FAERS Safety Report 26053170 (Version 1)
Quarter: 2025Q4

REPORT INFORMATION
  Report Type: Spontaneous
  Country: US (occurrence: None)
  Receive Date: 20251114
  Receipt Date: 20251114
  Transmission Date: 20260117
  Serious: No
  Sender: FDA-CTU
  Company Number: None

PATIENT
  Age: 81 Year
  Sex: Female

DRUGS (1)
  1. XELJANZ [Suspect]
     Active Substance: TOFACITINIB CITRATE
     Indication: Rheumatoid arthritis
     Dosage: TAKE 5 ML VIA G-TUBE BID ORAL ?
     Route: 048
     Dates: start: 20251112

REACTIONS (1)
  - Death [None]

NARRATIVE: CASE EVENT DATE: 20251112
